FAERS Safety Report 5026541-4 (Version None)
Quarter: 2006Q2

REPORT INFORMATION
  Report Type: 
  Country: None (occurrence: None)
  Receive Date: 20060615
  Receipt Date: 20060607
  Transmission Date: 20061013
  Serious: Yes (Hospitalization)
  Sender: FDA-Public Use
  Company Number: US-AVENTIS-200616029GDDC

PATIENT
  Age: 50 Year
  Sex: Female

DRUGS (1)
  1. STIMATE [Suspect]
     Indication: VON WILLEBRAND'S DISEASE
     Route: 045
     Dates: start: 20040116, end: 20040117

REACTIONS (12)
  - AMNESIA [None]
  - CONVULSION [None]
  - DEPRESSION [None]
  - DISORIENTATION [None]
  - DISTURBANCE IN ATTENTION [None]
  - FLUSHING [None]
  - HEADACHE [None]
  - HYPERTENSION [None]
  - LOSS OF CONSCIOUSNESS [None]
  - MUSCLE SPASMS [None]
  - PARANOIA [None]
  - PERSONALITY CHANGE [None]
